FAERS Safety Report 8005887-1 (Version None)
Quarter: 2011Q4

REPORT INFORMATION
  Report Type: 
  Country: None (occurrence: None)
  Receive Date: 20111223
  Receipt Date: 20111214
  Transmission Date: 20120403
  Serious: Yes (Other)
  Sender: FDA-Public Use
  Company Number: JP-ROCHE-1024133

PATIENT
  Weight: 1.935 kg

DRUGS (2)
  1. ROCEPHIN [Suspect]
     Indication: PRODUCT USED FOR UNKNOWN INDICATION
     Route: 064
  2. CEFAZOLIN [Concomitant]

REACTIONS (2)
  - TACHYCARDIA [None]
  - FOETAL HEART RATE ABNORMAL [None]
